FAERS Safety Report 9474786 (Version 1)
Quarter: 2013Q3

REPORT INFORMATION
  Report Type: Spontaneous
  Country: US (occurrence: US)
  Receive Date: 20130823
  Receipt Date: 20130823
  Transmission Date: 20140515
  Serious: No
  Sender: FDA-Public Use
  Company Number: US-PFIZER INC-2013243513

PATIENT
  Age: 40 Year
  Sex: Female
  Weight: 60.77 kg

DRUGS (13)
  1. GABAPENTIN [Suspect]
     Indication: NEURALGIA
     Dosage: 80MG IN MORNING AND 20MG AT NIGHT
  2. EFFEXOR XR [Suspect]
     Indication: DEPRESSION
     Dosage: 37.5 MG, 2X/DAY
  3. EFFEXOR XR [Suspect]
     Indication: AUTONOMIC NEUROPATHY
  4. EFFEXOR XR [Suspect]
     Indication: ORTHOSTATIC HYPOTENSION
  5. EFFEXOR XR [Suspect]
     Indication: HYPOTENSION
  6. EFFEXOR XR [Suspect]
     Indication: PAROSMIA
  7. VENLAFAXINE HCL [Suspect]
     Indication: DEPRESSION
     Dosage: UNK
  8. VENLAFAXINE HCL [Suspect]
     Indication: AUTONOMIC NEUROPATHY
  9. VENLAFAXINE HCL [Suspect]
     Indication: ORTHOSTATIC HYPOTENSION
  10. VENLAFAXINE HCL [Suspect]
     Indication: HYPOTENSION
  11. VENLAFAXINE HCL [Suspect]
     Indication: PAROSMIA
  12. BENICAR [Concomitant]
     Indication: BLOOD PRESSURE ABNORMAL
     Dosage: 20MG DAILY
  13. LEVOTHYROXINE [Concomitant]
     Indication: HYPOTHYROIDISM
     Dosage: UNK, 1X/DAY

REACTIONS (10)
  - Off label use [Unknown]
  - Accidental exposure to product [Unknown]
  - Neuropathy peripheral [Unknown]
  - Therapeutic response unexpected [Unknown]
  - Drug withdrawal syndrome [Unknown]
  - Feeling abnormal [Unknown]
  - Somnolence [Unknown]
  - Hypersensitivity [Unknown]
  - Drug ineffective [Unknown]
  - Drug ineffective for unapproved indication [Unknown]
